FAERS Safety Report 18882212 (Version 1)
Quarter: 2021Q1

REPORT INFORMATION
  Report Type: Spontaneous
  Country: US (occurrence: US)
  Receive Date: 20210211
  Receipt Date: 20210211
  Transmission Date: 20210420
  Serious: No
  Sender: FDA-Public Use
  Company Number: US-PERRIGO-20US000718

PATIENT
  Age: 88 Year
  Sex: Female
  Weight: 58.5 kg

DRUGS (7)
  1. AMLODIPINE BESYLATE. [Concomitant]
     Active Substance: AMLODIPINE BESYLATE
     Indication: HYPERTENSION
     Dosage: UNK, UNK
     Route: 048
  2. AZELASTINE. [Concomitant]
     Active Substance: AZELASTINE HYDROCHLORIDE
     Indication: SINUSITIS
     Dosage: UNK, UNK
     Route: 045
     Dates: start: 2019
  3. CETIRIZINE HYDROCHLORIDE. [Suspect]
     Active Substance: CETIRIZINE HYDROCHLORIDE
     Indication: NASAL CONGESTION
     Dosage: 10 MG, QD FOR 4 OR 5 DAYS
     Route: 048
     Dates: start: 201912, end: 201912
  4. PREDNISONE. [Concomitant]
     Active Substance: PREDNISONE
     Indication: ATELECTASIS
     Dosage: UNK, UNK
     Route: 048
     Dates: start: 20200113
  5. AMOX+AC CLAV ACV [Concomitant]
     Indication: BACTERIAL INFECTION
     Dosage: 125 MG, UNK
     Route: 048
     Dates: start: 20200106, end: 20200112
  6. CETIRIZINE HYDROCHLORIDE. [Suspect]
     Active Substance: CETIRIZINE HYDROCHLORIDE
     Dosage: 10 MG, QD
     Route: 048
     Dates: start: 20200106, end: 20200114
  7. ZITHROMAX [Concomitant]
     Active Substance: AZITHROMYCIN DIHYDRATE
     Indication: BACTERIAL INFECTION
     Dosage: UNK, UNK
     Route: 048
     Dates: start: 20200113

REACTIONS (2)
  - Product administered to patient of inappropriate age [Recovered/Resolved]
  - Drug ineffective for unapproved indication [Unknown]

NARRATIVE: CASE EVENT DATE: 201912
